FAERS Safety Report 8459025 (Version 4)
Quarter: 2012Q4

REPORT INFORMATION
  Report Type: 
  Country: US (occurrence: US)
  Receive Date: 20120314
  Receipt Date: 20120907
  Transmission Date: 20130627
  Serious: Yes (Hospitalization, Other)
  Sender: FDA-Public Use
  Company Number: US-BAYER-2012-023488

PATIENT
  Age: 22 Year
  Sex: Female

DRUGS (1)
  1. MIRENA [Suspect]
     Indication: CONTRACEPTION
     Dosage: 20 mcg/24hr, CONT
     Route: 015
     Dates: start: 200807

REACTIONS (11)
  - Amenorrhoea [None]
  - Pregnancy with contraceptive device [Recovered/Resolved]
  - Haemorrhage in pregnancy [Recovered/Resolved]
  - Medical device complication [None]
  - Abdominal pain [None]
  - Complication of pregnancy [None]
  - Complication of device removal [None]
  - Premature rupture of membranes [None]
  - Abdominal pain upper [None]
  - Blood glucose decreased [None]
  - Premature delivery [None]
